FAERS Safety Report 6709282-4 (Version None)
Quarter: 2010Q2

REPORT INFORMATION
  Report Type: 
  Country: None (occurrence: None)
  Receive Date: 20100426
  Receipt Date: 20090731
  Transmission Date: 20101027
  Serious: Yes (Other)
  Sender: FDA-Public Use
  Company Number: TEST00209004314

PATIENT
  Age: 82 Year
  Sex: Male
  Weight: 78.181 kg

DRUGS (3)
  1. ANDROGEL [Suspect]
     Indication: BLOOD TESTOSTERONE FREE DECREASED
     Dosage: 5 GRAM (S) TRANSCUTANEOUS DAILY DOSE: 5 GRAM(S), VIA PUMP
     Route: 062
     Dates: start: 20080101, end: 20090727
  2. TOPROL-XL (METOPROLOL EXTENDED RELEASE) [Concomitant]
  3. TRIAMTERENE+HYDROCHLOROTHIAZIDE (TRIAMTERENE+HYDROCHLOROTHIAZIDE) [Concomitant]

REACTIONS (1)
  - BLOOD PRESSURE INCREASED [None]
